FAERS Safety Report 4916171-4 (Version None)
Quarter: 2006Q1

REPORT INFORMATION
  Report Type: 
  Country: None (occurrence: None)
  Receive Date: 20060217
  Receipt Date: 20051004
  Transmission Date: 20060701
  Serious: Yes (Hospitalization, Other)
  Sender: FDA-Public Use
  Company Number: US-MERCK-0510USA02685

PATIENT
  Age: 75 Year
  Sex: Male

DRUGS (1)
  1. VIOXX [Suspect]
     Indication: OSTEOARTHRITIS
     Route: 048

REACTIONS (6)
  - COAGULATION TIME SHORTENED [None]
  - HYPOGLYCAEMIA [None]
  - INFLUENZA [None]
  - ISCHAEMIC STROKE [None]
  - METABOLIC ENCEPHALOPATHY [None]
  - PNEUMONIA [None]
